FAERS Safety Report 4683929-9 (Version None)
Quarter: 2005Q2

REPORT INFORMATION
  Report Type: 
  Country: None (occurrence: None)
  Receive Date: 20050602
  Receipt Date: 20050411
  Transmission Date: 20051028
  Serious: No
  Sender: FDA-Public Use
  Company Number: USA050188207

PATIENT
  Age: 26 Year
  Sex: Male

DRUGS (5)
  1. CYMBALTA [Suspect]
     Indication: DEPRESSION
     Dosage: 60 MG DAY
  2. WELLBUTRIN [Concomitant]
  3. AMBIEN [Concomitant]
  4. EFFEXOR [Concomitant]
  5. PREVACID [Concomitant]

REACTIONS (6)
  - ANGER [None]
  - ANXIETY [None]
  - EXOPHTHALMOS [None]
  - INSOMNIA [None]
  - IRRITABILITY [None]
  - PRESCRIBED OVERDOSE [None]
